FAERS Safety Report 6883978-6 (Version None)
Quarter: 2010Q3

REPORT INFORMATION
  Report Type: 
  Country: None (occurrence: None)
  Receive Date: 20100729
  Receipt Date: 20100723
  Transmission Date: 20110219
  Serious: Yes (Death, Hospitalization)
  Sender: FDA-Public Use
  Company Number: DE-CELGENEUS-062-21880-10062873

PATIENT
  Age: 70 Year
  Sex: Male
  Weight: 76 kg

DRUGS (3)
  1. REVLIMID [Suspect]
     Route: 048
     Dates: start: 20100501, end: 20100601
  2. BENDAMUSTINE [Concomitant]
     Route: 065
     Dates: start: 20100301
  3. RITUXIMAB [Concomitant]
     Route: 065
     Dates: start: 20100301

REACTIONS (4)
  - AGRANULOCYTOSIS [None]
  - CHRONIC LYMPHOCYTIC LEUKAEMIA [None]
  - GENERAL PHYSICAL HEALTH DETERIORATION [None]
  - PNEUMONIA FUNGAL [None]
